FAERS Safety Report 15432158 (Version 3)
Quarter: 2018Q4

REPORT INFORMATION
  Report Type: Report from Study
  Country: US (occurrence: US)
  Receive Date: 20180926
  Receipt Date: 20181205
  Transmission Date: 20190204
  Serious: Yes (Hospitalization)
  Sender: FDA-Public Use
  Company Number: US-EISAI MEDICAL RESEARCH-EC-2018-045255

PATIENT
  Age: 72 Year
  Sex: Female
  Weight: 61.2 kg

DRUGS (5)
  1. COMPAZINE [Concomitant]
     Active Substance: PROCHLORPERAZINE MALEATE
  2. LENVIMA [Suspect]
     Active Substance: LENVATINIB
     Indication: THYROID CANCER
     Route: 048
     Dates: start: 20180908, end: 201809
  3. LENVIMA [Suspect]
     Active Substance: LENVATINIB
     Route: 048
     Dates: start: 201809, end: 201809
  4. LENVIMA [Suspect]
     Active Substance: LENVATINIB
     Dosage: TAKE 14 MG FOR TWO WEEKS THEN 18 MG DAILY
     Route: 048
     Dates: start: 2018, end: 201811
  5. LENVIMA [Suspect]
     Active Substance: LENVATINIB
     Dosage: TAKE 14 MG FOR TWO WEEKS THEN 18 MG DAILY
     Route: 048
     Dates: start: 201811, end: 20181122

REACTIONS (16)
  - Urinary tract infection [Unknown]
  - Oral pain [Not Recovered/Not Resolved]
  - Neck pain [Not Recovered/Not Resolved]
  - Blood magnesium decreased [Unknown]
  - Dysphagia [Not Recovered/Not Resolved]
  - Gait disturbance [Not Recovered/Not Resolved]
  - Dizziness [Not Recovered/Not Resolved]
  - Weight decreased [Not Recovered/Not Resolved]
  - Atrial fibrillation [Unknown]
  - Headache [Not Recovered/Not Resolved]
  - Cystitis [Not Recovered/Not Resolved]
  - Dehydration [Not Recovered/Not Resolved]
  - Nausea [Not Recovered/Not Resolved]
  - Diarrhoea [Not Recovered/Not Resolved]
  - Hypophagia [Not Recovered/Not Resolved]
  - Dry mouth [Unknown]

NARRATIVE: CASE EVENT DATE: 201809
